FAERS Safety Report 7599122-6 (Version None)
Quarter: 2011Q3

REPORT INFORMATION
  Report Type: 
  Country: None (occurrence: None)
  Receive Date: 20110711
  Receipt Date: 20090306
  Transmission Date: 20111222
  Serious: Yes (Hospitalization, Other)
  Sender: FDA-Public Use
  Company Number: US-BAYER-2011-010185

PATIENT
  Age: 72 Year
  Sex: Male
  Weight: 86.9 kg

DRUGS (13)
  1. TRASYLOL [Suspect]
     Indication: MITRAL VALVE REPAIR
     Dosage: 50ML/HR INFUSION
     Route: 042
     Dates: start: 20060426, end: 20060426
  2. DYAZIDE [Concomitant]
     Dosage: 50/12.5 DAILY
     Route: 048
  3. TRASYLOL [Suspect]
     Indication: AORTIC VALVE REPLACEMENT
     Dosage: 200ML LOADING DOSE
     Route: 042
     Dates: start: 20060426, end: 20060426
  4. CEFAZOLIN [Concomitant]
     Dosage: 1 GM
     Route: 042
     Dates: start: 20060426
  5. HEPARIN [Concomitant]
     Dosage: 1000 UNITS
     Route: 042
     Dates: start: 20060426
  6. PLASMA [Concomitant]
     Dosage: 1 U, ONCE
     Route: 042
     Dates: start: 20060426
  7. VASOTEC [Concomitant]
     Dosage: 20 MG, BID
     Route: 048
  8. PLATELETS [Concomitant]
     Dosage: 1 U, ONCE
     Route: 042
     Dates: start: 20060426
  9. ACETYLSALICYLIC ACID SRT [Concomitant]
     Dosage: 81 MG, QD
     Route: 048
  10. MEVACOR [Concomitant]
     Dosage: 40 MG, QD
     Route: 048
  11. FENTANYL [Concomitant]
     Dosage: 20 CC
     Route: 042
     Dates: start: 20060426
  12. VERSED [Concomitant]
     Dosage: UNK
     Route: 042
     Dates: start: 20060426
  13. PROTAMINE SULFATE [Concomitant]
     Dosage: 250 MG
     Route: 042
     Dates: start: 20060426

REACTIONS (12)
  - RENAL IMPAIRMENT [None]
  - RENAL INJURY [None]
  - PAIN [None]
  - INJURY [None]
  - EMOTIONAL DISTRESS [None]
  - RENAL FAILURE [None]
  - STRESS [None]
  - ANXIETY [None]
  - UNEVALUABLE EVENT [None]
  - FEAR [None]
  - MULTI-ORGAN FAILURE [None]
  - DEPRESSION [None]
